FAERS Safety Report 7961247-0 (Version None)
Quarter: 2011Q4

REPORT INFORMATION
  Report Type: 
  Country: None (occurrence: None)
  Receive Date: 20111207
  Receipt Date: 20101027
  Transmission Date: 20120403
  Serious: No
  Sender: FDA-Public Use
  Company Number: US-GLAXOSMITHKLINE-A0889132A

PATIENT
  Age: 68 Year
  Sex: Male

DRUGS (2)
  1. NO CONCURRENT MEDICATION [Concomitant]
  2. EVOCLIN [Suspect]
     Indication: ERYTHRASMA
     Dosage: 1APP TWICE PER DAY
     Route: 061
     Dates: start: 20101018, end: 20101020

REACTIONS (4)
  - CANDIDIASIS [None]
  - HYPERSENSITIVITY [None]
  - BURNING SENSATION [None]
  - RASH [None]
